FAERS Safety Report 6309209-3 (Version None)
Quarter: 2009Q3

REPORT INFORMATION
  Report Type: 
  Country: None (occurrence: None)
  Receive Date: 20090814
  Receipt Date: 20090810
  Transmission Date: 20100115
  Serious: Yes (Hospitalization)
  Sender: FDA-Public Use
  Company Number: FR-WYE-G04219409

PATIENT
  Sex: Female

DRUGS (3)
  1. EFFEXOR [Suspect]
     Route: 048
     Dates: end: 20090711
  2. XANAX [Concomitant]
     Dosage: UNKNOWN
  3. STILNOX [Concomitant]
     Dosage: UNKNOWN

REACTIONS (5)
  - CONVULSION [None]
  - HEAD INJURY [None]
  - HYPOKALAEMIA [None]
  - HYPONATRAEMIA [None]
  - LOSS OF CONSCIOUSNESS [None]
